FAERS Safety Report 15317251 (Version 1)
Quarter: 2018Q3

REPORT INFORMATION
  Report Type: Spontaneous
  Country: US (occurrence: US)
  Receive Date: 20180824
  Receipt Date: 20180824
  Transmission Date: 20181010
  Serious: No
  Sender: FDA-Public Use
  Company Number: US-GLAXOSMITHKLINE-US2018151927

PATIENT
  Sex: Female

DRUGS (1)
  1. VENTOLIN HFA [Suspect]
     Active Substance: ALBUTEROL SULFATE
     Indication: PULMONARY FIBROSIS
     Dosage: UNK
     Route: 055

REACTIONS (4)
  - Product use in unapproved indication [Unknown]
  - Dyspnoea [Recovering/Resolving]
  - Cough [Recovering/Resolving]
  - Wrong technique in product usage process [Recovered/Resolved]
